FAERS Safety Report 5576497-0 (Version None)
Quarter: 2007Q4

REPORT INFORMATION
  Report Type: 
  Country: None (occurrence: None)
  Receive Date: 20071228
  Receipt Date: 20071227
  Transmission Date: 20080405
  Serious: Yes (Other)
  Sender: FDA-Public Use
  Company Number: A0700588A

PATIENT
  Age: 33 Year
  Sex: Female

DRUGS (4)
  1. WELLBUTRIN [Suspect]
     Indication: DEPRESSION
     Route: 048
     Dates: start: 20040101
  2. LEXAPRO [Concomitant]
  3. AMBIEN [Concomitant]
  4. UNKNOWN MEDICATION [Concomitant]

REACTIONS (3)
  - AGGRESSION [None]
  - ANGER [None]
  - PSYCHOMOTOR HYPERACTIVITY [None]
